FAERS Safety Report 24134021 (Version 1)
Quarter: 2024Q3

REPORT INFORMATION
  Report Type: Spontaneous
  Country: CA (occurrence: CA)
  Receive Date: 20240724
  Receipt Date: 20240724
  Transmission Date: 20241017
  Serious: Yes (Other)
  Sender: GILEAD
  Company Number: CA-GILEAD-2024-0680975

PATIENT
  Sex: Female

DRUGS (1)
  1. TRODELVY [Suspect]
     Active Substance: SACITUZUMAB GOVITECAN-HZIY
     Indication: Triple negative breast cancer
     Dosage: 06/26 (D8)
     Route: 065

REACTIONS (3)
  - Oesophageal compression [Unknown]
  - Erythema [Unknown]
  - Localised oedema [Unknown]
